FAERS Safety Report 11964664 (Version 2)
Quarter: 2017Q2

REPORT INFORMATION
  Report Type: Report from Study
  Country: FR (occurrence: FR)
  Receive Date: 20160127
  Receipt Date: 20170504
  Transmission Date: 20170829
  Serious: Yes (Hospitalization, Other)
  Sender: FDA-Public Use
  Company Number: FR-TEVA-628992ACC

PATIENT
  Age: 74 Year
  Sex: Female

DRUGS (23)
  1. OBINUTUZUMAB [Suspect]
     Active Substance: OBINUTUZUMAB
     Dosage: 975 MILLIGRAM DAILY; (CYCLE 1 DAY 2)
     Route: 042
     Dates: start: 20160106
  2. ZOPHREN [Concomitant]
     Active Substance: ONDANSETRON
     Indication: PROPHYLAXIS
     Dosage: 16 MILLIGRAM DAILY;
     Route: 042
     Dates: start: 20160105, end: 20160111
  3. INNOHEP [Concomitant]
     Active Substance: TINZAPARIN SODIUM
     Indication: PROPHYLAXIS
     Dosage: .6 ML DAILY;
     Route: 058
     Dates: start: 20160105
  4. LEDERFOLINE [Concomitant]
     Active Substance: LEUCOVORIN CALCIUM
     Indication: PRODUCT USED FOR UNKNOWN INDICATION
     Route: 048
     Dates: start: 20150126
  5. BENDAMUSTINE HYDROCHLORIDE. [Suspect]
     Active Substance: BENDAMUSTINE HYDROCHLORIDE
     Indication: CHRONIC LYMPHOCYTIC LEUKAEMIA
     Dosage: ON 2 DAYS
     Route: 042
     Dates: start: 20160105, end: 20160106
  6. BENDAMUSTINE HYDROCHLORIDE. [Suspect]
     Active Substance: BENDAMUSTINE HYDROCHLORIDE
     Dosage: ON 2 DAYS
     Route: 042
     Dates: start: 20160106
  7. SOTALOL. [Concomitant]
     Active Substance: SOTALOL
     Indication: HYPERTENSION
     Dosage: 320 MILLIGRAM DAILY;
     Route: 048
     Dates: start: 201009
  8. POTASSIUM CHLORIDE. [Concomitant]
     Active Substance: POTASSIUM CHLORIDE
     Indication: PRODUCT USED FOR UNKNOWN INDICATION
     Dosage: 3 GRAM DAILY;
     Route: 042
     Dates: start: 20160106, end: 20160106
  9. ATORVASTATIN [Concomitant]
     Active Substance: ATORVASTATIN
     Indication: HYPERCHOLESTEROLAEMIA
     Dosage: 10 MILLIGRAM DAILY;
     Route: 048
     Dates: start: 2013
  10. OGAST [Concomitant]
     Active Substance: LANSOPRAZOLE
     Indication: GASTROOESOPHAGEAL REFLUX DISEASE
     Dosage: 30 MILLIGRAM DAILY;
     Route: 048
     Dates: start: 2005
  11. TINZAPARIN SODIUM [Suspect]
     Active Substance: TINZAPARIN SODIUM
     Indication: PRODUCT USED FOR UNKNOWN INDICATION
     Dosage: .6 ML DAILY;
     Route: 058
     Dates: start: 20160105, end: 20160105
  12. POTASSIUM CHLORIDE. [Concomitant]
     Active Substance: POTASSIUM CHLORIDE
     Dosage: 2 GRAM DAILY;
     Route: 042
     Dates: start: 20160109, end: 20160112
  13. LEXOMIL [Concomitant]
     Active Substance: BROMAZEPAM
     Dosage: 4.5 MILLIGRAM DAILY;
     Route: 048
     Dates: start: 20160105
  14. OBINUTUZUMAB [Suspect]
     Active Substance: OBINUTUZUMAB
     Indication: CHRONIC LYMPHOCYTIC LEUKAEMIA
     Dosage: 25 MILLIGRAM DAILY; (CYCLE 1 DAY 1)
     Route: 042
     Dates: start: 20160105
  15. DEXAMETHASONE. [Concomitant]
     Active Substance: DEXAMETHASONE
     Indication: PRODUCT USED FOR UNKNOWN INDICATION
     Dosage: SINGE DOSE
     Route: 065
     Dates: start: 20160104, end: 20160104
  16. POLARAMINE [Concomitant]
     Active Substance: DEXCHLORPHENIRAMINE MALEATE
     Indication: PROPHYLAXIS
     Dosage: 5 MILLIGRAM DAILY;
     Route: 042
     Dates: start: 20160105, end: 20160107
  17. PRIMPERAN [Concomitant]
     Active Substance: METOCLOPRAMIDE HYDROCHLORIDE
     Indication: PROPHYLAXIS
     Dosage: 30 MILLIGRAM DAILY;
     Route: 042
     Dates: start: 20160105, end: 20160116
  18. ZELITREX [Concomitant]
     Active Substance: VALACYCLOVIR HYDROCHLORIDE
     Indication: PRODUCT USED FOR UNKNOWN INDICATION
     Dosage: 1000 MILLIGRAM DAILY;
     Route: 048
     Dates: start: 20150126
  19. LAROXYL [Concomitant]
     Active Substance: AMITRIPTYLINE
     Indication: MIGRAINE
     Dosage: 20 MILLIGRAM DAILY;
     Route: 048
     Dates: start: 2015
  20. POTASSIUM CHLORIDE. [Concomitant]
     Active Substance: POTASSIUM CHLORIDE
     Dosage: 4 GRAM DAILY;
     Route: 042
     Dates: start: 20160113
  21. LEXOMIL [Concomitant]
     Active Substance: BROMAZEPAM
     Indication: PROPHYLAXIS
     Dosage: 1.5 MILLIGRAM DAILY;
     Route: 048
     Dates: end: 20160104
  22. POLARAMINE [Concomitant]
     Active Substance: DEXCHLORPHENIRAMINE MALEATE
     Indication: PREMEDICATION
     Dosage: BEFORE C2, C3 AND C4
     Route: 042
     Dates: start: 20160209, end: 20160412
  23. SOLU-MEDROL [Concomitant]
     Active Substance: METHYLPREDNISOLONE SODIUM SUCCINATE
     Indication: PROPHYLAXIS
     Dosage: 100 MILLIGRAM DAILY;
     Route: 042
     Dates: start: 20160105, end: 20160107

REACTIONS (2)
  - Pyrexia [Recovered/Resolved]
  - Haematuria [Recovered/Resolved]

NARRATIVE: CASE EVENT DATE: 20160105
